FAERS Safety Report 8124841-2 (Version None)
Quarter: 2012Q1

REPORT INFORMATION
  Report Type: 
  Country: None (occurrence: None)
  Receive Date: 20120209
  Receipt Date: 20120206
  Transmission Date: 20120608
  Serious: Yes (Other)
  Sender: FDA-Public Use
  Company Number: GB-PFIZER INC-2012032537

PATIENT
  Age: 41 Year
  Sex: Male
  Weight: 68.18 kg

DRUGS (3)
  1. VARENICLINE TARTRATE [Suspect]
     Dosage: UNK
     Dates: start: 20120119
  2. PREDNISOLONE [Concomitant]
     Dosage: UNK
     Dates: start: 20111012, end: 20111223
  3. LANSOPRAZOLE [Concomitant]
     Dosage: UNK
     Dates: start: 20120127

REACTIONS (3)
  - GINGIVAL BLEEDING [None]
  - GINGIVAL PAIN [None]
  - HAEMATEMESIS [None]
